FAERS Safety Report 17065090 (Version 2)
Quarter: 2019Q4

REPORT INFORMATION
  Report Type: Spontaneous
  Country: US (occurrence: US)
  Receive Date: 20191122
  Receipt Date: 20191218
  Transmission Date: 20200122
  Serious: No
  Sender: FDA-Public Use
  Company Number: US-SA-2019SA320421

PATIENT
  Age: 55 Year
  Sex: Female

DRUGS (23)
  1. PRALUENT [Suspect]
     Active Substance: ALIROCUMAB
     Indication: HYPERLIPIDAEMIA
     Dosage: 150 MG/ML, QOW
     Route: 058
     Dates: start: 20180927
  2. PEPCID [Concomitant]
     Active Substance: FAMOTIDINE
  3. MEDROL [Concomitant]
     Active Substance: METHYLPREDNISOLONE
  4. ARAVA [Concomitant]
     Active Substance: LEFLUNOMIDE
  5. NORCO [Concomitant]
     Active Substance: ACETAMINOPHEN\HYDROCODONE BITARTRATE
  6. XANAX [Concomitant]
     Active Substance: ALPRAZOLAM
  7. CARVEDILOL. [Concomitant]
     Active Substance: CARVEDILOL
  8. PROPIONATE [Concomitant]
  9. FLEXERIL [Concomitant]
     Active Substance: CYCLOBENZAPRINE HYDROCHLORIDE
  10. IBUPROFEN. [Concomitant]
     Active Substance: IBUPROFEN
  11. FLONASE ALLERGY RELIEF [Concomitant]
     Active Substance: FLUTICASONE PROPIONATE
  12. COLCHICINE. [Concomitant]
     Active Substance: COLCHICINE
  13. CLOBETASOL [Concomitant]
     Active Substance: CLOBETASOL
  14. OMEPRAZOLE. [Concomitant]
     Active Substance: OMEPRAZOLE
  15. ATORVASTATIN CALCIUM. [Concomitant]
     Active Substance: ATORVASTATIN CALCIUM
  16. VICODIN [Concomitant]
     Active Substance: ACETAMINOPHEN\HYDROCODONE BITARTRATE
  17. KETOCONAZOLE. [Concomitant]
     Active Substance: KETOCONAZOLE
  18. LISINOPRIL. [Concomitant]
     Active Substance: LISINOPRIL
  19. PROMETHAZINE [Concomitant]
     Active Substance: PROMETHAZINE HYDROCHLORIDE
  20. MEDROL [Concomitant]
     Active Substance: METHYLPREDNISOLONE
  21. CLINDAMYCIN HCL [Concomitant]
     Active Substance: CLINDAMYCIN HYDROCHLORIDE
  22. PERCOCET [Concomitant]
     Active Substance: ACETAMINOPHEN\OXYCODONE HYDROCHLORIDE
  23. PROAIR HFA [Concomitant]
     Active Substance: ALBUTEROL SULFATE

REACTIONS (1)
  - Foot deformity [Unknown]
